FAERS Safety Report 5245452-2 (Version None)
Quarter: 2007Q1

REPORT INFORMATION
  Report Type: 
  Country: None (occurrence: None)
  Receive Date: 20070223
  Receipt Date: 20070212
  Transmission Date: 20070707
  Serious: Yes (Other)
  Sender: FDA-Public Use
  Company Number: AU-ELI_LILLY_AND_COMPANY-AU200702004145

PATIENT
  Age: 52 Year
  Sex: Female

DRUGS (2)
  1. GEMZAR [Suspect]
     Indication: NON-SMALL CELL LUNG CANCER
     Dosage: 2100 MG, OTHER
     Dates: start: 20070105
  2. CISPLATIN [Concomitant]
     Indication: NON-SMALL CELL LUNG CANCER
     Dosage: 130 MG, OTHER
     Dates: start: 20070112

REACTIONS (4)
  - DYSPNOEA [None]
  - PRURITUS [None]
  - RASH [None]
  - SWOLLEN TONGUE [None]
